FAERS Safety Report 6743037-X (Version None)
Quarter: 2010Q2

REPORT INFORMATION
  Report Type: 
  Country: None (occurrence: None)
  Receive Date: 20100527
  Receipt Date: 20100518
  Transmission Date: 20101027
  Serious: No
  Sender: FDA-Public Use
  Company Number: 2009BI004197

PATIENT
  Sex: Female

DRUGS (1)
  1. TYSABRI [Suspect]
     Indication: MULTIPLE SCLEROSIS
     Route: 042
     Dates: start: 20081031

REACTIONS (8)
  - APHASIA [None]
  - DIPLOPIA [None]
  - FATIGUE [None]
  - HEADACHE [None]
  - PHOTOPSIA [None]
  - SLUGGISHNESS [None]
  - VISION BLURRED [None]
  - VISUAL IMPAIRMENT [None]
